FAERS Safety Report 17488172 (Version 9)
Quarter: 2020Q4

REPORT INFORMATION
  Report Type: Spontaneous
  Country: US (occurrence: US)
  Receive Date: 20200303
  Receipt Date: 20201202
  Transmission Date: 20210113
  Serious: No
  Sender: FDA-Public Use
  Company Number: US-PFIZER INC-2020093066

PATIENT
  Age: 65 Year
  Sex: Male
  Weight: 88 kg

DRUGS (6)
  1. LYRICA [Suspect]
     Active Substance: PREGABALIN
     Dosage: 250 MG, DAILY (2 CAPSULES IN THE MORNING/2 CAPSULES IN THE AFTERNOON/MAY TAKE 1 CAPSULE AT NIGHT)
     Route: 048
     Dates: start: 20200227
  2. LYRICA [Suspect]
     Active Substance: PREGABALIN
     Dosage: 50 MG, AS NEEDED [FOUR TIMES A DAY) AS NEEDED]
     Route: 048
  3. LYRICA [Suspect]
     Active Substance: PREGABALIN
     Indication: PAIN
     Dosage: 250 MG, DAILY (50MG 2 MORNING 1 NOON AND 2 NIGHT)
     Route: 048
  4. LYRICA [Suspect]
     Active Substance: PREGABALIN
     Dosage: 50 MG, 4X/DAY (MAY TAKE EXTRA CAPSULE AT NIGHT IF NEEDED; NO MORE THAN 5 CAPS DAILY FOR PRN)
     Route: 048
  5. NORTRIPTYLINE [Concomitant]
     Active Substance: NORTRIPTYLINE
     Indication: BRAIN INJURY
     Dosage: 50 MG, DAILY, (1 NORTRIPTYLINE 25MG IN THE MORNING AND 1 NORTRIPTYLINE 25MG AT NIGHT)
     Dates: start: 202002
  6. NORTRIPTYLINE [Concomitant]
     Active Substance: NORTRIPTYLINE
     Indication: BRAIN OPERATION

REACTIONS (1)
  - Therapeutic product effect incomplete [Unknown]
